FAERS Safety Report 5005666-3 (Version None)
Quarter: 2006Q2

REPORT INFORMATION
  Report Type: 
  Country: None (occurrence: None)
  Receive Date: 20060515
  Receipt Date: 20060502
  Transmission Date: 20061013
  Serious: Yes (Other)
  Sender: FDA-Public Use
  Company Number: 2006047326

PATIENT
  Age: 56 Year
  Sex: Male
  Weight: 95 kg

DRUGS (3)
  1. CAMPTOSAR [Suspect]
     Indication: COLON CANCER METASTATIC
     Dosage: INTRAVENOUS
     Route: 042
     Dates: start: 20060110
  2. ELVORINE (CALCIUM LEVOFOLINATE) [Concomitant]
  3. FLUOROURACIL [Concomitant]

REACTIONS (9)
  - CONDITION AGGRAVATED [None]
  - FALL [None]
  - INTERVERTEBRAL DISC DISORDER [None]
  - MONOPLEGIA [None]
  - MUSCLE ATROPHY [None]
  - MUSCULAR WEAKNESS [None]
  - POLYNEUROPATHY [None]
  - SCIATICA [None]
  - THERAPEUTIC AGENT TOXICITY [None]
